FAERS Safety Report 7214917-6 (Version None)
Quarter: 2011Q1

REPORT INFORMATION
  Report Type: 
  Country: None (occurrence: None)
  Receive Date: 20110107
  Receipt Date: 20100512
  Transmission Date: 20110831
  Serious: No
  Sender: FDA-Public Use
  Company Number: A0859394A

PATIENT
  Sex: Male

DRUGS (9)
  1. ASPIRIN [Concomitant]
  2. SIMVASTATIN [Concomitant]
  3. ATENOLOL [Concomitant]
  4. LOVAZA [Suspect]
     Dosage: 2CAP TWICE PER DAY
     Route: 048
  5. PRAMIPEXOLE [Concomitant]
  6. FUROSEMIDE [Concomitant]
  7. DIOVAN [Concomitant]
  8. ALPRAZOLAM [Concomitant]
  9. HYDROCODONE [Concomitant]

REACTIONS (3)
  - HIGH DENSITY LIPOPROTEIN DECREASED [None]
  - LOW DENSITY LIPOPROTEIN INCREASED [None]
  - DRUG INEFFECTIVE [None]
